FAERS Safety Report 7265238-7 (Version None)
Quarter: 2011Q1

REPORT INFORMATION
  Report Type: 
  Country: None (occurrence: None)
  Receive Date: 20110131
  Receipt Date: 20110120
  Transmission Date: 20110831
  Serious: Yes (Hospitalization)
  Sender: FDA-Public Use
  Company Number: US-BAXTER-2010BH030594

PATIENT
  Age: 58 Year
  Sex: Female
  Weight: 104 kg

DRUGS (6)
  1. EXTRANEAL [Suspect]
     Indication: PERITONEAL DIALYSIS
     Route: 033
  2. DIANEAL [Suspect]
     Indication: PERITONEAL DIALYSIS
     Route: 033
  3. DIANEAL [Suspect]
     Indication: DIABETES MELLITUS
     Route: 033
  4. DIANEAL [Suspect]
     Indication: DIABETES MELLITUS
     Route: 033
  5. DIANEAL [Suspect]
     Indication: PERITONEAL DIALYSIS
     Route: 033
  6. EXTRANEAL [Suspect]
     Indication: DIABETES MELLITUS
     Route: 033

REACTIONS (1)
  - CEREBROVASCULAR ACCIDENT [None]
